FAERS Safety Report 7261653-6 (Version None)
Quarter: 2011Q1

REPORT INFORMATION
  Report Type: 
  Country: None (occurrence: None)
  Receive Date: 20110124
  Receipt Date: 20110124
  Transmission Date: 20110831
  Serious: No
  Sender: FDA-Public Use
  Company Number: None

PATIENT
  Age: 52 Year
  Sex: Male
  Weight: 113.3993 kg

DRUGS (2)
  1. TRIAD ALCOHOL SWABS 70%V/V TRIAD [Suspect]
     Indication: PSORIATIC ARTHROPATHY
     Dates: start: 20100726, end: 20110106
  2. TRIAD ALCOHOL SWABS 70%V/V TRIAD [Suspect]
     Indication: DIABETES MELLITUS
     Dates: start: 20100726, end: 20110106

REACTIONS (1)
  - INJECTION SITE IRRITATION [None]
